FAERS Safety Report 9402894 (Version 2)
Quarter: 2013Q3

REPORT INFORMATION
  Report Type: Spontaneous
  Country: DE (occurrence: DE)
  Receive Date: 20130716
  Receipt Date: 20130731
  Transmission Date: 20140515
  Serious: Yes (Congenital Anomaly, Other)
  Sender: FDA-Public Use
  Company Number: DE-PFIZER INC-2013202134

PATIENT
  Sex: Male
  Weight: 2.71 kg

DRUGS (5)
  1. RAMIPRIL [Suspect]
     Indication: HYPERTENSION
     Dosage: 10 MG, 2X/DAY
     Route: 064
     Dates: start: 20070215, end: 20071001
  2. AMLODIPINE BESILATE [Suspect]
     Indication: HYPERTENSION
     Dosage: 5 MG, 2X/DAY
     Route: 064
     Dates: start: 20070215, end: 20071001
  3. MOXONIDINE [Suspect]
     Indication: HYPERTENSION
     Dosage: 0.2 MG, 2X/DAY
     Route: 064
     Dates: start: 20070215, end: 20071001
  4. TORASEMIDE [Suspect]
     Indication: HYPERTENSION
     Dosage: 20 MG, DAILY
     Route: 064
     Dates: start: 20070215, end: 20071001
  5. METOPROLOL [Concomitant]
     Indication: HYPERTENSION
     Dosage: 200 MG, 2X/DAY
     Route: 064
     Dates: start: 20070215, end: 20071001

REACTIONS (13)
  - Maternal exposure timing unspecified [Unknown]
  - Atrial septal defect [Recovered/Resolved]
  - Cranial sutures widening [Not Recovered/Not Resolved]
  - Foot deformity [Not Recovered/Not Resolved]
  - Cardiac septal hypertrophy [Recovered/Resolved]
  - Abnormal palmar/plantar creases [Not Recovered/Not Resolved]
  - Dysmorphism [Not Recovered/Not Resolved]
  - Strabismus [Unknown]
  - Premature baby [Unknown]
  - Ventricular hypertrophy [Unknown]
  - Head deformity [Unknown]
  - Breech presentation [Unknown]
  - Hand deformity [Unknown]
